FAERS Safety Report 9159840 (Version 1)
Quarter: 2013Q1

REPORT INFORMATION
  Report Type: Spontaneous
  Country: JP (occurrence: JP)
  Receive Date: 20130313
  Receipt Date: 20130313
  Transmission Date: 20140127
  Serious: Yes (Death)
  Sender: FDA-Public Use
  Company Number: JP-ASTRAZENECA-1996AP18971

PATIENT
  Age: 39 Year
  Sex: Female

DRUGS (3)
  1. ZOLADEX [Suspect]
     Indication: BREAST CANCER
     Route: 058
  2. NOLVADEX [Suspect]
     Indication: BREAST CANCER
     Route: 048
  3. FURTULON [Concomitant]
     Indication: BREAST CANCER
     Route: 048

REACTIONS (1)
  - Myocardial infarction [Fatal]
